FAERS Safety Report 4704159-8 (Version None)
Quarter: 2005Q2

REPORT INFORMATION
  Report Type: 
  Country: None (occurrence: None)
  Receive Date: 20050629
  Receipt Date: 20050621
  Transmission Date: 20051028
  Serious: Yes (Other)
  Sender: FDA-Public Use
  Company Number: TPG2005A00185

PATIENT
  Age: 65 Year
  Sex: Male

DRUGS (8)
  1. ACTOS [Suspect]
     Indication: DIABETES MELLITUS
     Dosage: 30 MG (30 MG, 1 IN 1 D), ORAL
     Route: 048
     Dates: start: 20040416, end: 20040722
  2. ATACAND HCT [Concomitant]
  3. MOXONIDINE (MOXONIDINE) [Concomitant]
  4. L-THYROXINE (LEVOTHYROXINE) [Concomitant]
  5. ATACAND [Concomitant]
  6. AMLODIPINE [Concomitant]
  7. METFORMIN (METFORMIN) [Concomitant]
  8. REMIPROSTAN UNO (HERBAL PREPARATION) [Concomitant]

REACTIONS (3)
  - GAMMA-GLUTAMYLTRANSFERASE INCREASED [None]
  - SEXUAL DYSFUNCTION [None]
  - WEIGHT INCREASED [None]
